FAERS Safety Report 10250281 (Version 1)
Quarter: 2014Q2

REPORT INFORMATION
  Report Type: Spontaneous
  Country: US (occurrence: US)
  Receive Date: 20140620
  Receipt Date: 20140620
  Transmission Date: 20141212
  Serious: Yes (Hospitalization)
  Sender: FDA-Public Use
  Company Number: US-B.I. PHARMACEUTICALS,INC./RIDGEFIELD-2014-BI-27448BP

PATIENT
  Age: 77 Year
  Sex: Female
  Weight: 74.84 kg

DRUGS (11)
  1. SPIRIVA [Suspect]
     Indication: EMPHYSEMA
     Dosage: 18 MCG
     Route: 055
     Dates: start: 2012
  2. FUROSEMIDE [Concomitant]
     Indication: FLUID RETENTION
     Route: 048
  3. OMEPRAZOLE [Concomitant]
     Indication: GASTROOESOPHAGEAL REFLUX DISEASE
     Dosage: 20 MG
     Route: 048
  4. CARVEDILOL [Concomitant]
     Indication: HYPERTENSION
     Dosage: 12.5 MG
     Route: 048
     Dates: start: 2010
  5. WARFARIN [Concomitant]
     Indication: ATRIAL FIBRILLATION
     Dosage: 5 MG
     Route: 048
  6. PREDNISONE [Concomitant]
     Route: 048
  7. DULOXETINE [Concomitant]
     Indication: PAIN IN EXTREMITY
     Route: 048
  8. OXYCONTIN [Concomitant]
     Indication: PAIN IN EXTREMITY
     Route: 048
  9. MAGNESIUM [Concomitant]
     Route: 048
  10. POTASSIUM [Concomitant]
     Route: 048
  11. IRON SUPPLEMENT [Concomitant]
     Route: 048

REACTIONS (5)
  - Wound infection [Not Recovered/Not Resolved]
  - Wound [Not Recovered/Not Resolved]
  - Visual acuity reduced [Not Recovered/Not Resolved]
  - Constipation [Not Recovered/Not Resolved]
  - Dry mouth [Not Recovered/Not Resolved]
